FAERS Safety Report 8001635-X (Version None)
Quarter: 2011Q4

REPORT INFORMATION
  Report Type: 
  Country: None (occurrence: None)
  Receive Date: 20111222
  Receipt Date: 20111213
  Transmission Date: 20120403
  Serious: Yes (Hospitalization)
  Sender: FDA-Public Use
  Company Number: JP-ROCHE-1005383

PATIENT
  Sex: Male

DRUGS (10)
  1. MUCOSOLVAN [Concomitant]
  2. AMLODIPINE [Concomitant]
     Route: 065
     Dates: start: 20110801, end: 20110831
  3. CLARITHROMYCIN [Concomitant]
     Route: 065
     Dates: start: 20110801, end: 20110831
  4. SENNOSIDE A+B [Concomitant]
  5. EPINASTINE HYDROCHLORIDE [Concomitant]
     Route: 065
     Dates: start: 20110801, end: 20110831
  6. AMLODIPINE [Concomitant]
  7. LUCENTIS [Suspect]
     Indication: AGE-RELATED MACULAR DEGENERATION
     Route: 050
     Dates: start: 20110831
  8. FERROUS SULFATE TAB [Concomitant]
  9. VIGAMOX [Concomitant]
     Dates: start: 20110801, end: 20110901
  10. FAMOTIDINE [Concomitant]

REACTIONS (1)
  - CEREBRAL INFARCTION [None]
